FAERS Safety Report 9563830 (Version 1)
Quarter: 2013Q3

REPORT INFORMATION
  Report Type: Spontaneous
  Country: US (occurrence: None)
  Receive Date: 20130926
  Receipt Date: 20130926
  Transmission Date: 20140515
  Serious: Yes (Disabling)
  Sender: FDA-Public Use
  Company Number: None

PATIENT
  Age: 55 Year
  Sex: Female
  Weight: 65.77 kg

DRUGS (1)
  1. BOTOX [Suspect]
     Indication: FACIAL SPASM
     Dosage: 1 SHOT

REACTIONS (4)
  - Gait disturbance [None]
  - Aphagia [None]
  - Asthenia [None]
  - Impaired work ability [None]
